FAERS Safety Report 7671663-2 (Version None)
Quarter: 2011Q3

REPORT INFORMATION
  Report Type: 
  Country: None (occurrence: None)
  Receive Date: 20110809
  Receipt Date: 20100907
  Transmission Date: 20111222
  Serious: Yes (Other)
  Sender: FDA-Public Use
  Company Number: US-BAYER-201013480NA

PATIENT
  Age: 34 Year
  Sex: Female
  Weight: 90.909 kg

DRUGS (7)
  1. ALLEGRA D 24 HOUR [Concomitant]
     Dosage: UNK
     Route: 048
     Dates: start: 20060901
  2. YAZ [Suspect]
     Indication: PRODUCT USED FOR UNKNOWN INDICATION
  3. OMNICEF [Concomitant]
     Dosage: UNK
     Dates: start: 20060301
  4. ALBUTEROL SULFATE AUTOHALER [Concomitant]
     Dosage: UNK
     Dates: start: 20041101, end: 20061001
  5. PROTONIX [Concomitant]
     Dosage: UNK
     Route: 048
     Dates: start: 20060901
  6. AVELOX [Concomitant]
     Dosage: UNK
     Dates: start: 20051001
  7. YASMIN [Suspect]
     Indication: PRODUCT USED FOR UNKNOWN INDICATION
     Dates: start: 20000101, end: 20060101

REACTIONS (4)
  - CHOLECYSTITIS CHRONIC [None]
  - CHOLELITHIASIS [None]
  - ABDOMINAL DISTENSION [None]
  - ABDOMINAL PAIN UPPER [None]
